FAERS Safety Report 9185128 (Version 1)
Quarter: 2012Q4

REPORT INFORMATION
  Report Type: 
  Country: BR (occurrence: BR)
  Receive Date: 20121101
  Receipt Date: 20121101
  Transmission Date: 20130627
  Serious: Yes (Hospitalization, Other)
  Sender: FDA-Public Use
  Company Number: BR-PFIZER INC-2012268904

PATIENT
  Age: 82 Year
  Sex: Female
  Weight: 55 kg

DRUGS (10)
  1. FRONTAL [Suspect]
     Dosage: 2 mg, 1x/day
     Route: 048
     Dates: start: 20110530
  2. ATENSINA [Concomitant]
     Dosage: UNK
  3. COZAAR [Concomitant]
     Dosage: UNK
  4. GALVUS [Concomitant]
     Dosage: UNK
  5. LASIX [Concomitant]
     Dosage: UNK
  6. MOTILIUM [Concomitant]
     Dosage: UNK
  7. PANTOPRAZOLE [Concomitant]
     Dosage: UNK
  8. PROLOPA [Concomitant]
     Dosage: UNK
  9. SYNTHROID [Concomitant]
     Indication: THYROID DISORDER
     Dosage: UNK
  10. VASTAREL [Concomitant]
     Dosage: UNK

REACTIONS (4)
  - Headache [Unknown]
  - Malaise [Unknown]
  - Urinary tract infection [Unknown]
  - Hyponatraemia [Unknown]
